FAERS Safety Report 15313054 (Version 3)
Quarter: 2018Q3

REPORT INFORMATION
  Report Type: Spontaneous
  Country: US (occurrence: US)
  Receive Date: 20180823
  Receipt Date: 20180911
  Transmission Date: 20181010
  Serious: No
  Sender: FDA-Public Use
  Company Number: US-SA-2018SA231289

PATIENT
  Sex: Male

DRUGS (11)
  1. DOXEPIN HYDROCHLORIDE. [Concomitant]
     Active Substance: DOXEPIN HYDROCHLORIDE
  2. FEXOFENADINE [Concomitant]
     Active Substance: FEXOFENADINE\FEXOFENADINE HYDROCHLORIDE
  3. DUPIXENT [Suspect]
     Active Substance: DUPILUMAB
     Indication: DERMATITIS ATOPIC
     Dosage: 300 MG, QOW
     Route: 058
     Dates: start: 20180508
  4. CYCLOSPORINE. [Concomitant]
     Active Substance: CYCLOSPORINE
  5. BENADRYL [Concomitant]
     Active Substance: DIPHENHYDRAMINE HYDROCHLORIDE
  6. SYMBICORT [Concomitant]
     Active Substance: BUDESONIDE\FORMOTEROL FUMARATE DIHYDRATE
  7. GENGRAF [Concomitant]
     Active Substance: CYCLOSPORINE
  8. LEVALBUTEROL TARTRATE. [Concomitant]
     Active Substance: LEVALBUTEROL TARTRATE
  9. MONTELUKAST SODIUM;THEOPHYLLINE [Concomitant]
  10. PROAIR HFA [Concomitant]
     Active Substance: ALBUTEROL SULFATE
  11. ZINC SULFATE [Concomitant]
     Active Substance: ZINC SULFATE\ZINC SULFATE ANHYDROUS

REACTIONS (3)
  - Drug ineffective [Unknown]
  - Headache [Unknown]
  - Eye swelling [Unknown]
